FAERS Safety Report 17200227 (Version 1)
Quarter: 2019Q4

REPORT INFORMATION
  Report Type: Spontaneous
  Country: IE (occurrence: IE)
  Receive Date: 20191226
  Receipt Date: 20191226
  Transmission Date: 20200122
  Serious: No
  Sender: FDA-Public Use
  Company Number: IE-ALKEM LABORATORIES LIMITED-IE-ALKEM-2019-03699

PATIENT
  Age: 67 Year
  Sex: Male

DRUGS (2)
  1. DELTACORTRIL [Suspect]
     Active Substance: PREDNISOLONE
     Indication: FIBROSIS
     Dosage: 10 MILLIGRAM
     Route: 065
  2. MYCOPHENOLATE MOFETIL. [Suspect]
     Active Substance: MYCOPHENOLATE MOFETIL
     Indication: FIBROSIS
     Dosage: 1000 MILLIGRAM, BID
     Route: 065

REACTIONS (1)
  - Drug ineffective [Unknown]
